FAERS Safety Report 16423569 (Version 3)
Quarter: 2019Q3

REPORT INFORMATION
  Report Type: Report from Study
  Country: US (occurrence: US)
  Receive Date: 20190613
  Receipt Date: 20190926
  Transmission Date: 20191004
  Serious: Yes (Hospitalization, Other)
  Sender: FDA-Public Use
  Company Number: US-BIOGEN-2019BI00749755

PATIENT
  Sex: Female

DRUGS (3)
  1. TECFIDERA [Suspect]
     Active Substance: DIMETHYL FUMARATE
     Indication: MULTIPLE SCLEROSIS
     Dosage: MIANTENANCE DOSE
     Route: 048
     Dates: start: 20190416
  2. TECFIDERA [Suspect]
     Active Substance: DIMETHYL FUMARATE
     Dosage: MIANTENANCE DOSE
     Route: 048
     Dates: end: 20190601
  3. TECFIDERA [Suspect]
     Active Substance: DIMETHYL FUMARATE
     Dosage: MIANTENANCE DOSE
     Route: 048
     Dates: start: 20190420, end: 20190602

REACTIONS (5)
  - Tremor [Unknown]
  - Pneumonia [Recovered/Resolved]
  - Coccidioidomycosis [Recovered/Resolved]
  - Disorientation [Unknown]
  - Decreased immune responsiveness [Unknown]
